FAERS Safety Report 25596525 (Version 1)
Quarter: 2025Q3

REPORT INFORMATION
  Report Type: Spontaneous
  Country: US (occurrence: None)
  Receive Date: 20250722
  Receipt Date: 20250722
  Transmission Date: 20251020
  Serious: No
  Sender: FDA-CTU
  Company Number: None

PATIENT
  Age: 53 Year
  Sex: Female

DRUGS (2)
  1. COSENTYX [Suspect]
     Active Substance: SECUKINUMAB
     Indication: Psoriatic arthropathy
     Route: 058
     Dates: start: 20250617
  2. COSENTYX [Concomitant]
     Active Substance: SECUKINUMAB
     Dates: start: 20250617

REACTIONS (2)
  - Rash [None]
  - Skin irritation [None]

NARRATIVE: CASE EVENT DATE: 20250721
